FAERS Safety Report 25351447 (Version 1)
Quarter: 2025Q2

REPORT INFORMATION
  Report Type: Spontaneous
  Country: JP (occurrence: JP)
  Receive Date: 20250523
  Receipt Date: 20250523
  Transmission Date: 20250716
  Serious: Yes (Other)
  Sender: EMD SERONO INC
  Company Number: JP-Merck Healthcare KGaA-2024036060

PATIENT
  Age: 81 Year
  Sex: Female

DRUGS (1)
  1. TEPMETKO [Suspect]
     Active Substance: TEPOTINIB HYDROCHLORIDE
     Indication: Lung adenocarcinoma

REACTIONS (4)
  - Liver disorder [Unknown]
  - Interstitial lung disease [Unknown]
  - Oedema [Unknown]
  - Hypoalbuminaemia [Unknown]
